FAERS Safety Report 23267292 (Version 1)
Quarter: 2023Q4

REPORT INFORMATION
  Report Type: Spontaneous
  Country: CA (occurrence: CA)
  Receive Date: 20231206
  Receipt Date: 20231206
  Transmission Date: 20240109
  Serious: Yes (Other)
  Sender: FDA-Public Use
  Company Number: CA-PFIZER INC-PV202300196771

PATIENT
  Age: 56 Year
  Sex: Female

DRUGS (2)
  1. IBRANCE [Suspect]
     Active Substance: PALBOCICLIB
     Indication: Breast cancer metastatic
     Dosage: UNK
  2. CA + D3 [Concomitant]
     Dosage: UNK, 1X/DAY (PO OD)
     Route: 048

REACTIONS (3)
  - Neuropathy peripheral [Unknown]
  - Arthralgia [Unknown]
  - Musculoskeletal discomfort [Unknown]
